FAERS Safety Report 19062552 (Version 1)
Quarter: 2021Q1

REPORT INFORMATION
  Report Type: Spontaneous
  Country: US (occurrence: US)
  Receive Date: 20210326
  Receipt Date: 20210326
  Transmission Date: 20210420
  Serious: No
  Sender: FDA-Public Use
  Company Number: US-009507513-2103USA000176

PATIENT
  Sex: Female
  Weight: 74.84 kg

DRUGS (5)
  1. DECADRON [Suspect]
     Active Substance: DEXAMETHASONE
     Indication: PAIN
  2. TYLENOL [Concomitant]
     Active Substance: ACETAMINOPHEN
     Indication: PYREXIA
     Dosage: UNK
     Dates: start: 202102
  3. DECADRON [Suspect]
     Active Substance: DEXAMETHASONE
     Indication: CHILLS
  4. SARS?COV?2 SPIKE PROTEIN MRNA VACCINE [Concomitant]
     Indication: PROPHYLAXIS
     Dosage: UNK
     Dates: start: 20210209
  5. DECADRON [Suspect]
     Active Substance: DEXAMETHASONE
     Indication: PYREXIA
     Dosage: UNK
     Dates: start: 20210223

REACTIONS (2)
  - Prescription drug used without a prescription [Unknown]
  - Product use in unapproved indication [Unknown]

NARRATIVE: CASE EVENT DATE: 20210223
